FAERS Safety Report 9993568 (Version 2)
Quarter: 2014Q1

REPORT INFORMATION
  Report Type: Spontaneous
  Country: CA (occurrence: CA)
  Receive Date: 20140310
  Receipt Date: 20140321
  Transmission Date: 20141002
  Serious: Yes (Other)
  Sender: FDA-Public Use
  Company Number: PHHY2014CA028122

PATIENT
  Sex: 0

DRUGS (2)
  1. CICLOSPORIN [Suspect]
     Dosage: UNK
  2. ATGAM [Suspect]
     Dosage: UNK

REACTIONS (2)
  - Aplastic anaemia [Unknown]
  - No therapeutic response [Unknown]
